FAERS Safety Report 6093950-4 (Version None)
Quarter: 2009Q1

REPORT INFORMATION
  Report Type: 
  Country: None (occurrence: None)
  Receive Date: 20090226
  Receipt Date: 20090220
  Transmission Date: 20090719
  Serious: Yes (Other)
  Sender: FDA-Public Use
  Company Number: A0770312A

PATIENT
  Age: 51 Year
  Sex: Female
  Weight: 125 kg

DRUGS (5)
  1. AVANDIA [Suspect]
     Dosage: 4MG THREE TIMES PER DAY
     Route: 048
     Dates: start: 19990101, end: 20060101
  2. CELEBREX [Concomitant]
  3. BENAZEPRIL HYDROCHLORIDE [Concomitant]
  4. RENAGEL [Concomitant]
  5. TRAMADOL HCL [Concomitant]

REACTIONS (1)
  - MYOCARDIAL INFARCTION [None]
